FAERS Safety Report 9745846 (Version 1)
Quarter: 2013Q4

REPORT INFORMATION
  Report Type: Spontaneous
  Country: JP (occurrence: JP)
  Receive Date: 20131211
  Receipt Date: 20131211
  Transmission Date: 20140711
  Serious: Yes (Other)
  Sender: FDA-Public Use
  Company Number: JP-OTSUKA-JP-2013-15731

PATIENT
  Age: 73 Year
  Sex: Male

DRUGS (2)
  1. PLETAAL [Suspect]
     Indication: CEREBRAL INFARCTION
     Dosage: UNK UNKNOWN, UNKNOWN
     Route: 048
  2. CLOPIDOGREL SULFATE [Concomitant]
     Indication: CEREBRAL INFARCTION
     Dosage: UNK UNKNOWN, UNKNOWN
     Route: 048

REACTIONS (3)
  - Renal haematoma [Unknown]
  - Anaemia [Unknown]
  - Blood pressure decreased [Unknown]
